FAERS Safety Report 7291625-7 (Version None)
Quarter: 2011Q1

REPORT INFORMATION
  Report Type: 
  Country: None (occurrence: None)
  Receive Date: 20110209
  Receipt Date: 20110209
  Transmission Date: 20110831
  Serious: Yes (Other)
  Sender: FDA-Public Use
  Company Number: None

PATIENT
  Age: 30 Year
  Sex: Male
  Weight: 77.1115 kg

DRUGS (1)
  1. SUBOXONE [Suspect]
     Indication: DRUG DEPENDENCE
     Dosage: 1/2 FILMTAB TWICE DAILY SL
     Route: 060
     Dates: start: 20101204, end: 20110207

REACTIONS (5)
  - DRY MOUTH [None]
  - TONGUE DISORDER [None]
  - PAIN [None]
  - ORAL DISCOMFORT [None]
  - RASH MACULAR [None]
